FAERS Safety Report 8282476-5 (Version None)
Quarter: 2012Q2

REPORT INFORMATION
  Report Type: 
  Country: None (occurrence: None)
  Receive Date: 20120413
  Receipt Date: 20120409
  Transmission Date: 20120825
  Serious: Yes (Death, Life-Threatening)
  Sender: FDA-Public Use
  Company Number: JP-ASTRAZENECA-2012SE23238

PATIENT
  Age: 79 Year
  Sex: Female

DRUGS (2)
  1. WARFARIN SODIUM [Concomitant]
     Indication: INFARCTION
     Dosage: DOSE UNKNOWN
     Route: 048
  2. NEXIUM [Suspect]
     Indication: HYPERGASTRINAEMIA
     Route: 048
     Dates: start: 20120319, end: 20120323

REACTIONS (2)
  - HAEMORRHAGIC INFARCTION [None]
  - CEREBRAL INFARCTION [None]
